FAERS Safety Report 6220171-4 (Version None)
Quarter: 2009Q2

REPORT INFORMATION
  Report Type: 
  Country: None (occurrence: None)
  Receive Date: 20090605
  Receipt Date: 20090529
  Transmission Date: 20091009
  Serious: No
  Sender: FDA-Public Use
  Company Number: 006635

PATIENT
  Age: 13 Year
  Sex: Male

DRUGS (7)
  1. BUSULFEX [Suspect]
     Indication: STEM CELL TRANSPLANT
  2. CYCLOPHOSPHAMIDE [Suspect]
     Indication: STEM CELL TRANSPLANT
     Dosage: 120 MG/KG
  3. ETOPOSIDE [Suspect]
     Indication: ACUTE MYELOID LEUKAEMIA
     Dosage: 1600 MG/M2
  4. DEXAMETHASONE TAB [Suspect]
     Indication: ACUTE MYELOID LEUKAEMIA
  5. CYTARABINE [Suspect]
     Indication: ACUTE MYELOID LEUKAEMIA
  6. THIOGUANINE [Suspect]
     Indication: ACUTE MYELOID LEUKAEMIA
  7. DAUNORUBICIN HCL [Suspect]
     Indication: ACUTE MYELOID LEUKAEMIA

REACTIONS (1)
  - MUCOEPIDERMOID CARCINOMA [None]
